FAERS Safety Report 22325379 (Version 1)
Quarter: 2023Q2

REPORT INFORMATION
  Report Type: Spontaneous
  Country: US (occurrence: None)
  Receive Date: 20230515
  Receipt Date: 20230515
  Transmission Date: 20230722
  Serious: No
  Sender: FDA-Public Use
  Company Number: None

PATIENT
  Sex: Female
  Weight: 67.13 kg

DRUGS (2)
  1. IBRANCE [Suspect]
     Active Substance: PALBOCICLIB
     Indication: Breast cancer female
     Dosage: OTHER QUANTITY : 1T;?FREQUENCY : DAILY;?
     Route: 048
     Dates: start: 20230419
  2. LETROZOLE [Suspect]
     Active Substance: LETROZOLE
     Dosage: OTHER QUANTITY : 1T;?FREQUENCY : DAILY;?
     Route: 048

REACTIONS (2)
  - White blood cell count decreased [None]
  - Therapy interrupted [None]
